FAERS Safety Report 5480168-9 (Version None)
Quarter: 2007Q4

REPORT INFORMATION
  Report Type: 
  Country: None (occurrence: None)
  Receive Date: 20071003
  Receipt Date: 20070705
  Transmission Date: 20080405
  Serious: Yes (Life-Threatening, Hospitalization)
  Sender: FDA-Public Use
  Company Number: OMPQ-UK-0710S-1241

PATIENT
  Age: 66 Year
  Sex: Male

DRUGS (9)
  1. OMNIPAQUE 140 [Suspect]
     Indication: URETERIC STENOSIS
     Dosage: 70 ML, SINGLE DOSE, I.V.
     Route: 042
     Dates: start: 20070430, end: 20070430
  2. SIMVASTATIN [Concomitant]
  3. AMLODIPINE [Concomitant]
  4. BACLOFEN [Concomitant]
  5. DANTROLENE SODIUM [Concomitant]
  6. LANSOPRAZOLE              (ZOTON) [Concomitant]
  7. TOLTERODINE        (DETRUSITOL) [Concomitant]
  8. TEGRETOL [Concomitant]
  9. WARFARIN SODIUM [Concomitant]
     Indication: URETERIC STENOSIS
     Dosage: 70 ML, SINGLE DOSE, I.V.
     Route: 042
     Dates: start: 20070430, end: 20070430

REACTIONS (7)
  - CONFUSIONAL STATE [None]
  - CONVULSION [None]
  - COUGH [None]
  - INFUSION RELATED REACTION [None]
  - NAUSEA [None]
  - STATUS EPILEPTICUS [None]
  - VOMITING [None]
